FAERS Safety Report 4777121-7 (Version None)
Quarter: 2005Q3

REPORT INFORMATION
  Report Type: 
  Country: None (occurrence: None)
  Receive Date: 20050921
  Receipt Date: 20050907
  Transmission Date: 20060218
  Serious: Yes (Hospitalization)
  Sender: FDA-Public Use
  Company Number: 217679

PATIENT
  Age: 44 Year
  Sex: Female
  Weight: 61.7 kg

DRUGS (10)
  1. AVASTIN [Suspect]
     Indication: BREAST CANCER METASTATIC
     Dosage: 962 MG,
     Dates: start: 20050823
  2. XELODA [Suspect]
     Indication: BREAST CANCER METASTATIC
     Dosage: 3500 MG, BID, ORAL
     Route: 048
     Dates: start: 20050823, end: 20050904
  3. ATIVAN [Concomitant]
  4. FENTANYL (FENTANYL CITRATE) [Concomitant]
  5. DICLOXACILLIN [Concomitant]
  6. CALCIUM D 500 (CALCIUM CARBONATE, CHOLECALCIFEROL) [Concomitant]
  7. COLACE (DOCUSATE SODIUM) [Concomitant]
  8. ABREVA [Concomitant]
  9. IMODIUM [Concomitant]
  10. DIFLUCAN [Concomitant]

REACTIONS (4)
  - DEHYDRATION [None]
  - DIARRHOEA [None]
  - PALMAR-PLANTAR ERYTHRODYSAESTHESIA SYNDROME [None]
  - VOMITING [None]
